FAERS Safety Report 25896201 (Version 1)
Quarter: 2025Q4

REPORT INFORMATION
  Report Type: Spontaneous
  Country: US (occurrence: None)
  Receive Date: 20251008
  Receipt Date: 20251008
  Transmission Date: 20260119
  Serious: Yes (Hospitalization)
  Sender: FDA-CTU
  Company Number: None

PATIENT
  Sex: Male

DRUGS (3)
  1. ALHEMO [Suspect]
     Active Substance: CONCIZUMAB-MTCI
     Indication: Factor IX deficiency
     Dosage: 15 MG DAILY SUBCUTNEOUS
     Route: 058
     Dates: start: 20250522
  2. SEVENFACT SDV (5000U) [Concomitant]
  3. SEVENFACT SDV (1000U) [Concomitant]

REACTIONS (1)
  - Pharyngeal haemorrhage [None]
